APPROVED DRUG PRODUCT: K+10
Active Ingredient: POTASSIUM CHLORIDE
Strength: 10MEQ
Dosage Form/Route: TABLET, EXTENDED RELEASE;ORAL
Application: A070999 | Product #001
Applicant: FUTURE PAK LTD
Approved: Oct 22, 1987 | RLD: No | RS: No | Type: DISCN